FAERS Safety Report 12597454 (Version 1)
Quarter: 2016Q3

REPORT INFORMATION
  Report Type: Spontaneous
  Country: IT (occurrence: IT)
  Receive Date: 20160726
  Receipt Date: 20160726
  Transmission Date: 20161109
  Serious: Yes (Hospitalization)
  Sender: FDA-Public Use
  Company Number: PHHY2016IT101263

PATIENT
  Age: 26 Year
  Sex: Female

DRUGS (2)
  1. HALDOL [Concomitant]
     Active Substance: HALOPERIDOL
     Indication: DYSMORPHOPHOBIA
     Dosage: 15 GTT, (DROPS) UNK
     Route: 048
  2. TEGRETOL [Suspect]
     Active Substance: CARBAMAZEPINE
     Indication: DYSMORPHOPHOBIA
     Dosage: 3200 MG, ONCE/SINGLE TOTAL
     Route: 048
     Dates: start: 20160716, end: 20160716

REACTIONS (3)
  - Intentional overdose [Recovered/Resolved]
  - Intentional self-injury [Unknown]
  - Tachycardia [Recovered/Resolved]

NARRATIVE: CASE EVENT DATE: 20160716
